FAERS Safety Report 4380951-7 (Version None)
Quarter: 2004Q2

REPORT INFORMATION
  Report Type: 
  Country: None (occurrence: None)
  Receive Date: 20040614
  Receipt Date: 20040603
  Transmission Date: 20050107
  Serious: Yes (Other)
  Sender: FDA-Public Use
  Company Number: USA-2004-0015466

PATIENT
  Sex: Female

DRUGS (1)
  1. OXYCONTIN [Suspect]
     Dosage: 20 MG, Q12H; 40 MG, Q12H

REACTIONS (2)
  - CEREBROVASCULAR ACCIDENT [None]
  - INADEQUATE ANALGESIA [None]
